FAERS Safety Report 21379413 (Version 2)
Quarter: 2022Q3

REPORT INFORMATION
  Report Type: Spontaneous
  Country: AR (occurrence: AR)
  Receive Date: 20220927
  Receipt Date: 20220928
  Transmission Date: 20221027
  Serious: Yes (Other)
  Sender: FDA-Public Use
  Company Number: AR-NOVARTISPH-NVSC2022AR216242

PATIENT
  Sex: Male

DRUGS (5)
  1. ZOLEDRONIC ACID [Suspect]
     Active Substance: ZOLEDRONIC ACID
     Indication: Product used for unknown indication
     Dosage: UNK, QMO (1 OF 4 MG),  SINCE 2 YEARS AGO
     Route: 065
  2. EXFORGE [Suspect]
     Active Substance: AMLODIPINE BESYLATE\VALSARTAN
     Indication: Hypertension
     Dosage: (5-160)
     Route: 065
  3. EXFORGE [Suspect]
     Active Substance: AMLODIPINE BESYLATE\VALSARTAN
     Dosage: (5-320)
     Route: 065
     Dates: end: 202206
  4. DIUREX [Concomitant]
     Indication: Product used for unknown indication
     Dosage: HALF OF 25 MG, DAILY
     Route: 065
  5. NOSTER [Concomitant]
     Indication: Product used for unknown indication
     Dosage: 1 OF 5-320 DAILY
     Route: 065
     Dates: start: 202206

REACTIONS (5)
  - Prostate cancer [Unknown]
  - Hypothyroidism [Unknown]
  - Blood pressure increased [Unknown]
  - Tooth disorder [Unknown]
  - Neck pain [Unknown]
